FAERS Safety Report 16607944 (Version 1)
Quarter: 2019Q3

REPORT INFORMATION
  Report Type: Spontaneous
  Country: US (occurrence: US)
  Receive Date: 20190722
  Receipt Date: 20190722
  Transmission Date: 20191004
  Serious: No
  Sender: FDA-Public Use
  Company Number: US-AMGEN-USASP2019115921

PATIENT
  Age: 56 Year
  Sex: Female

DRUGS (16)
  1. ENBREL [Suspect]
     Active Substance: ETANERCEPT
     Indication: RHEUMATOID ARTHRITIS
     Dosage: 50 MILLIGRAM, QWK
     Route: 058
  2. TRAMADOL HCL [Concomitant]
     Active Substance: TRAMADOL HYDROCHLORIDE
     Dosage: UNK
  3. DULOXETINE. [Concomitant]
     Active Substance: DULOXETINE
     Dosage: 60 MILLIGRAM
  4. GLIMEPIRIDE. [Concomitant]
     Active Substance: GLIMEPIRIDE
     Dosage: UNK
  5. METFORMIN HCL [Concomitant]
     Active Substance: METFORMIN HYDROCHLORIDE
     Dosage: 10 MILLIGRAM
  6. GABAPENTIN. [Concomitant]
     Active Substance: GABAPENTIN
     Dosage: UNK
  7. OZEMPIC [Concomitant]
     Active Substance: SEMAGLUTIDE
     Dosage: 1 MILLIGRAM
  8. ATORVASTATIN [Concomitant]
     Active Substance: ATORVASTATIN
     Dosage: 80 MILLIGRAM
  9. LEVOTHYROXIN [Concomitant]
     Active Substance: LEVOTHYROXINE
     Dosage: UNK
  10. HYDROXYCHLOROQUINE SULPHATE [Concomitant]
     Active Substance: HYDROXYCHLOROQUINE
     Dosage: UNK
  11. METOPROLOL TARTRATE. [Concomitant]
     Active Substance: METOPROLOL TARTRATE
     Dosage: 25 MILLIGRAM
  12. XANAX [Concomitant]
     Active Substance: ALPRAZOLAM
     Dosage: 2 MILLIGRAM
  13. ACID CONTROL [Concomitant]
     Active Substance: FAMOTIDINE
     Dosage: 20 MILLIGRAM
  14. PIOGLITAZONE HCL [Concomitant]
     Active Substance: PIOGLITAZONE
     Dosage: UNK
  15. ASPIRIN [ACETYLSALICYLIC ACID] [Concomitant]
     Active Substance: ASPIRIN
     Dosage: 81 MILLIGRAM
  16. DICLOFENAC SODIUM. [Concomitant]
     Active Substance: DICLOFENAC SODIUM
     Dosage: 75 MILLIGRAM

REACTIONS (1)
  - Injection site pain [Not Recovered/Not Resolved]
